FAERS Safety Report 16969244 (Version 2)
Quarter: 2019Q4

REPORT INFORMATION
  Report Type: Spontaneous
  Country: US (occurrence: US)
  Receive Date: 20191029
  Receipt Date: 20191113
  Transmission Date: 20200122
  Serious: Yes (Other)
  Sender: FDA-Public Use
  Company Number: US-AUROBINDO-AUR-APL-2019-068871

PATIENT
  Age: 28 Year
  Sex: Female

DRUGS (8)
  1. METHADONE [Suspect]
     Active Substance: METHADONE HYDROCHLORIDE
     Dosage: 140 MILLIGRAM
     Route: 065
  2. CLONIDINE. [Suspect]
     Active Substance: CLONIDINE
     Indication: ANXIETY
     Dosage: 0.1 MILLIGRAM, 3 TIMES A DAY (UP TO 0.9 MG)
     Route: 065
  3. CLONIDINE. [Suspect]
     Active Substance: CLONIDINE
     Indication: DEPRESSION
  4. METHADONE [Suspect]
     Active Substance: METHADONE HYDROCHLORIDE
     Indication: DRUG USE DISORDER
     Dosage: 70 MILLIGRAM  14 WEEKS
     Route: 065
  5. CLONAZEPAM. [Concomitant]
     Active Substance: CLONAZEPAM
     Indication: PRODUCT USED FOR UNKNOWN INDICATION
     Dosage: 3 MILLIGRAM, ONCE A DAY
     Route: 065
  6. PROMETHAZINE [Concomitant]
     Active Substance: PROMETHAZINE HYDROCHLORIDE
     Indication: PRODUCT USED FOR UNKNOWN INDICATION
     Dosage: UNK
     Route: 065
  7. GABAPENTIN. [Suspect]
     Active Substance: GABAPENTIN
     Indication: PRODUCT USED FOR UNKNOWN INDICATION
     Dosage: UP TO 3200 MG
     Route: 065
  8. METHADONE [Suspect]
     Active Substance: METHADONE HYDROCHLORIDE
     Dosage: 120 MILLIGRAM AT 37 WEEKS
     Route: 065

REACTIONS (3)
  - Maternal use of illicit drugs [Unknown]
  - Sedation [Unknown]
  - Withdrawal syndrome [Unknown]
